FAERS Safety Report 6176552-0 (Version None)
Quarter: 2009Q2

REPORT INFORMATION
  Report Type: 
  Country: None (occurrence: None)
  Receive Date: 20090501
  Receipt Date: 20090430
  Transmission Date: 20091009
  Serious: Yes (Hospitalization)
  Sender: FDA-Public Use
  Company Number: US-RB-014927-09

PATIENT
  Age: 45 Year
  Sex: Male

DRUGS (1)
  1. SUBOXONE [Suspect]
     Dosage: DOSE UNKNOWN
     Route: 060
     Dates: start: 20060101

REACTIONS (4)
  - DEEP VEIN THROMBOSIS [None]
  - DRUG WITHDRAWAL SYNDROME [None]
  - DYSURIA [None]
  - PULMONARY EMBOLISM [None]
